FAERS Safety Report 21130565 (Version 1)
Quarter: 2022Q3

REPORT INFORMATION
  Report Type: Spontaneous
  Country: FR (occurrence: FR)
  Receive Date: 20220726
  Receipt Date: 20220726
  Transmission Date: 20221027
  Serious: Yes (Hospitalization, Other)
  Sender: FDA-Public Use
  Company Number: None

PATIENT
  Age: 81 Year
  Sex: Female

DRUGS (17)
  1. CLONAZEPAM [Suspect]
     Active Substance: CLONAZEPAM
     Indication: Product used for unknown indication
     Dosage: EVERY 1 DAY ?DAILY DOSE: 1.5 MILLIGRAM
     Route: 048
     Dates: start: 20220505, end: 20220512
  2. AUGMENTIN [Suspect]
     Active Substance: AMOXICILLIN\CLAVULANATE POTASSIUM
     Indication: Lung disorder
     Route: 048
     Dates: start: 20220506
  3. NEURONTIN [Suspect]
     Active Substance: GABAPENTIN
     Indication: Restless legs syndrome
     Dosage: EVERY 1 DAY ?DAILY DOSE: 200 MILLIGRAM
     Route: 048
     Dates: start: 20220503, end: 20220512
  4. ACETAMINOPHEN [Suspect]
     Active Substance: ACETAMINOPHEN
     Indication: Product used for unknown indication
     Dosage: 1 AS NECESSARY
     Route: 048
     Dates: start: 20220506
  5. PRAMIPEXOLE [Suspect]
     Active Substance: PRAMIPEXOLE
     Indication: Restless legs syndrome
     Dosage: EVERY 1 DAY?DAILY DOSE: 1 DOSAGE FORM
     Route: 048
     Dates: start: 20220424, end: 20220502
  6. PRAMIPEXOLE [Suspect]
     Active Substance: PRAMIPEXOLE
     Indication: Restless legs syndrome
     Route: 048
     Dates: start: 20220425
  7. PRAMIPEXOLE [Suspect]
     Active Substance: PRAMIPEXOLE
     Indication: Restless legs syndrome
     Dosage: OCCLUSIVE DRESSING TECHNIQUE
     Dates: start: 20220503
  8. ATROVENT [Concomitant]
     Active Substance: IPRATROPIUM BROMIDE
  9. BRICANYL [Concomitant]
     Active Substance: TERBUTALINE SULFATE
  10. CALCIPARINE [Concomitant]
     Active Substance: HEPARIN CALCIUM
  11. IXPRIM [Concomitant]
     Active Substance: ACETAMINOPHEN\TRAMADOL HYDROCHLORIDE
  12. KAYEXALATE [Concomitant]
     Active Substance: SODIUM POLYSTYRENE SULFONATE
  13. LEVOTHYROXINE [Concomitant]
     Active Substance: LEVOTHYROXINE
  14. POLYETHYLENE GLYCOL 4000 [Concomitant]
     Active Substance: POLYETHYLENE GLYCOL 4000
  15. Microlax [Concomitant]
  16. RENVELA [Concomitant]
     Active Substance: SEVELAMER CARBONATE
  17. TAHOR [Concomitant]
     Active Substance: ATORVASTATIN CALCIUM

REACTIONS (2)
  - Hypothermia [Recovered/Resolved]
  - Depressed level of consciousness [Recovering/Resolving]

NARRATIVE: CASE EVENT DATE: 20220501
